FAERS Safety Report 8349941-3 (Version None)
Quarter: 2012Q2

REPORT INFORMATION
  Report Type: 
  Country: None (occurrence: None)
  Receive Date: 20120510
  Receipt Date: 20120504
  Transmission Date: 20120825
  Serious: Yes (Other)
  Sender: FDA-Public Use
  Company Number: US-BAYER-2012-044594

PATIENT
  Age: 55 Year
  Sex: Female
  Weight: 73 kg

DRUGS (9)
  1. ARAVA [Concomitant]
  2. VERAPAMIL [Concomitant]
  3. NAPROXEN SODIUM [Suspect]
     Indication: PAIN
     Dosage: 4 DF, QD
     Route: 048
     Dates: start: 20120101
  4. GABAPENTIN [Concomitant]
  5. ESTROGEN [Concomitant]
  6. NAPROXEN SODIUM [Suspect]
     Dosage: 3 DF, QD
     Route: 048
     Dates: start: 20120101
  7. HUMIRA [Concomitant]
     Dosage: 3 DF, QD
     Route: 048
     Dates: start: 20120101
  8. LASIX [Concomitant]
  9. RANITIDINE [Concomitant]

REACTIONS (8)
  - HYPERSENSITIVITY [None]
  - RASH ERYTHEMATOUS [None]
  - OEDEMA PERIPHERAL [None]
  - RASH [None]
  - URTICARIA [None]
  - FACE OEDEMA [None]
  - EYELID OEDEMA [None]
  - PRURITUS [None]
